FAERS Safety Report 10355187 (Version 2)
Quarter: 2014Q3

REPORT INFORMATION
  Report Type: Spontaneous
  Country: US (occurrence: US)
  Receive Date: 20140731
  Receipt Date: 20140731
  Transmission Date: 20150326
  Serious: Yes (Hospitalization)
  Sender: FDA-Public Use
  Company Number: US-009507513-2011SP046654

PATIENT
  Sex: Female
  Weight: 129.28 kg

DRUGS (2)
  1. NUVARING [Suspect]
     Active Substance: ETHINYL ESTRADIOL\ETONOGESTREL
     Indication: CONTRACEPTION
     Dosage: UNK
     Route: 059
     Dates: start: 200808
  2. NUVARING [Suspect]
     Active Substance: ETHINYL ESTRADIOL\ETONOGESTREL
     Dosage: UNK
     Dates: start: 200909, end: 20091023

REACTIONS (6)
  - Antiphospholipid syndrome [Unknown]
  - Menorrhagia [Unknown]
  - Constipation [Unknown]
  - Deep vein thrombosis [Unknown]
  - Tendonitis [Unknown]
  - Viral infection [Unknown]

NARRATIVE: CASE EVENT DATE: 200909
